FAERS Safety Report 6283379-8 (Version None)
Quarter: 2009Q3

REPORT INFORMATION
  Report Type: 
  Country: None (occurrence: None)
  Receive Date: 20090721
  Receipt Date: 20090721
  Transmission Date: 20100115
  Serious: Yes (Death)
  Sender: FDA-Public Use
  Company Number: None

PATIENT
  Age: 35 Year
  Sex: Female
  Weight: 122 kg

DRUGS (2)
  1. HYDROMORPHONE HCL [Suspect]
     Indication: ABDOMINAL PAIN
     Dosage: HYDROMORPHONE ONCE IV
     Route: 042
     Dates: start: 20090527, end: 20090527
  2. PROMETHAZINE [Suspect]
     Dosage: PROMETHAZINE ONCE IV
     Route: 042

REACTIONS (1)
  - RESPIRATORY ARREST [None]
